FAERS Safety Report 4896433-X (Version None)
Quarter: 2006Q1

REPORT INFORMATION
  Report Type: 
  Country: None (occurrence: None)
  Receive Date: 20060126
  Receipt Date: 20060116
  Transmission Date: 20060701
  Serious: Yes (Life-Threatening, Hospitalization)
  Sender: FDA-Public Use
  Company Number: ENTC2006-0021

PATIENT
  Age: 77 Year
  Sex: Male
  Weight: 90.2 kg

DRUGS (8)
  1. STALEVO 100 [Suspect]
     Indication: PARKINSON'S DISEASE
     Dosage: 150 MG, 3 IN 1 D, ORAL
     Route: 048
     Dates: start: 20050715, end: 20051201
  2. LIPITOR [Suspect]
     Indication: BLOOD CHOLESTEROL INCREASED
     Dosage: 10 MG, ORAL
     Route: 048
     Dates: start: 20050208, end: 20051224
  3. MIRAPEX [Concomitant]
  4. TICLOPIDINE HCL [Concomitant]
  5. COENZYME Q10 [Concomitant]
  6. ASPIRIN [Concomitant]
  7. FISH OLI [Concomitant]
  8. VITAMIN E [Concomitant]

REACTIONS (4)
  - ALANINE AMINOTRANSFERASE INCREASED [None]
  - ASPARTATE AMINOTRANSFERASE INCREASED [None]
  - INFLUENZA [None]
  - RHABDOMYOLYSIS [None]
